FAERS Safety Report 7541227-X (Version None)
Quarter: 2011Q2

REPORT INFORMATION
  Report Type: 
  Country: None (occurrence: None)
  Receive Date: 20110610
  Receipt Date: 20110531
  Transmission Date: 20111010
  Serious: Yes (Other)
  Sender: FDA-Public Use
  Company Number: CA-MERCK-1106USA00097

PATIENT
  Age: 75 Year
  Sex: Male

DRUGS (11)
  1. METOPROLOL [Concomitant]
     Route: 048
  2. RABEPRAZOLE SODIUM [Concomitant]
     Route: 048
  3. FOLIC ACID [Concomitant]
     Route: 048
  4. ZETIA [Suspect]
     Route: 048
  5. PERINDOPRIL [Concomitant]
     Route: 048
  6. FUROSEMIDE [Concomitant]
     Route: 048
  7. ASCORBIC ACID [Concomitant]
     Route: 048
  8. CLONAZEPAM [Concomitant]
     Route: 048
  9. VITAMIN D (UNSPECIFIED) [Concomitant]
     Route: 065
  10. LIPITOR [Concomitant]
     Route: 048
  11. LOVAZA [Concomitant]
     Route: 065

REACTIONS (7)
  - CHROMATURIA [None]
  - MUSCULAR WEAKNESS [None]
  - ABDOMINAL PAIN [None]
  - FAECES PALE [None]
  - MYALGIA [None]
  - NAUSEA [None]
  - PRURITUS GENERALISED [None]
